FAERS Safety Report 23908539 (Version 2)
Quarter: 2024Q2

REPORT INFORMATION
  Report Type: Report from Study
  Country: AR (occurrence: AR)
  Receive Date: 20240528
  Receipt Date: 20240612
  Transmission Date: 20240716
  Serious: Yes (Other)
  Sender: FDA-Public Use
  Company Number: AR-002147023-NVSC2023AR270881

PATIENT
  Age: 28 Year
  Sex: Female

DRUGS (3)
  1. KESIMPTA [Suspect]
     Active Substance: OFATUMUMAB
     Indication: Multiple sclerosis
     Dosage: UNK, QW (FIRST 3 DOSES)
     Route: 058
     Dates: start: 20231115
  2. KESIMPTA [Suspect]
     Active Substance: OFATUMUMAB
     Dosage: 20 MG, QMO
     Route: 058
     Dates: start: 20231215, end: 20240111
  3. KESIMPTA [Suspect]
     Active Substance: OFATUMUMAB
     Dosage: UNK
     Route: 065
     Dates: start: 20231212, end: 202402

REACTIONS (8)
  - Tuberculosis [Unknown]
  - Pain [Recovered/Resolved]
  - Paraesthesia [Unknown]
  - Burning sensation [Unknown]
  - Hypoaesthesia [Unknown]
  - Malaise [Recovered/Resolved]
  - Anxiety [Unknown]
  - Panic attack [Unknown]

NARRATIVE: CASE EVENT DATE: 20231115
